FAERS Safety Report 7442821-7 (Version None)
Quarter: 2011Q2

REPORT INFORMATION
  Report Type: 
  Country: None (occurrence: None)
  Receive Date: 20110428
  Receipt Date: 20060327
  Transmission Date: 20111010
  Serious: Yes (Other)
  Sender: FDA-Public Use
  Company Number: PHHY2006MX02766

PATIENT
  Sex: Female

DRUGS (1)
  1. CO-DIOVAN [Suspect]
     Indication: HYPERTENSION
     Dosage: 160 MG VALS AND 12.5 MG HYDR
     Route: 048
     Dates: start: 20060211, end: 20060322

REACTIONS (7)
  - DECREASED APPETITE [None]
  - CHEST PAIN [None]
  - HYPOTENSION [None]
  - TACHYCARDIA [None]
  - ASPHYXIA [None]
  - SOMNOLENCE [None]
  - FATIGUE [None]
